FAERS Safety Report 17373305 (Version 1)
Quarter: 2020Q1

REPORT INFORMATION
  Report Type: Spontaneous
  Country: FR (occurrence: FR)
  Receive Date: 20200205
  Receipt Date: 20200205
  Transmission Date: 20200409
  Serious: Yes (Hospitalization, Other)
  Sender: FDA-Public Use
  Company Number: PHHY2017FR199845

PATIENT
  Age: 43 Year
  Sex: Male
  Weight: 95 kg

DRUGS (11)
  1. TACROLIMUS. [Suspect]
     Active Substance: TACROLIMUS
     Indication: IMMUNOSUPPRESSION
     Dosage: 7 MG, QD
     Route: 048
     Dates: start: 20160923
  2. TACROLIMUS. [Suspect]
     Active Substance: TACROLIMUS
     Dosage: 6 MG, QD
     Route: 065
     Dates: start: 20170107
  3. MEDROL [Concomitant]
     Active Substance: METHYLPREDNISOLONE
     Indication: IMMUNOSUPPRESSANT DRUG THERAPY
     Dosage: 1 OT, QD (4 UNK, ONCE DAILY)
     Route: 065
  4. IMUREL [Concomitant]
     Active Substance: AZATHIOPRINE SODIUM
     Indication: IMMUNOSUPPRESSANT DRUG THERAPY
     Dosage: 50 OT, QD (ONCE DAILY)
     Route: 065
  5. PIPERACILLINE / TAZOBACTAM MYLAN [Concomitant]
     Active Substance: PIPERACILLIN SODIUM\TAZOBACTAM SODIUM
     Indication: INFECTION
     Dosage: 12 G, QD
     Route: 042
     Dates: start: 20180918, end: 20180922
  6. TACROLIMUS. [Suspect]
     Active Substance: TACROLIMUS
     Dosage: 7 MG, QD
     Route: 048
     Dates: start: 20180923
  7. AMIKACINE [Concomitant]
     Active Substance: AMIKACIN
     Indication: INFECTION
     Dosage: 600 MG, QD
     Route: 042
     Dates: start: 20180918, end: 20180918
  8. TACROLIMUS. [Suspect]
     Active Substance: TACROLIMUS
     Dosage: 7 MG, QD
     Route: 065
     Dates: start: 20170307
  9. KAYEXALATE [Concomitant]
     Active Substance: SODIUM POLYSTYRENE SULFONATE
     Indication: HYPERKALAEMIA
     Dosage: UNK
     Route: 065
     Dates: start: 20180918, end: 201809
  10. TACROLIMUS. [Suspect]
     Active Substance: TACROLIMUS
     Indication: RENAL TRANSPLANT
     Dosage: 7 MG, QD
     Route: 065
     Dates: start: 20160901
  11. TACROLIMUS. [Suspect]
     Active Substance: TACROLIMUS
     Dosage: 6 MG, QD
     Route: 048
     Dates: start: 20180907, end: 20180922

REACTIONS (4)
  - Diarrhoea [Recovered/Resolved]
  - Diarrhoea [Recovered/Resolved]
  - Anuria [Recovered/Resolved]
  - Pyrexia [Recovered/Resolved]

NARRATIVE: CASE EVENT DATE: 20170913
